FAERS Safety Report 4875078-1 (Version None)
Quarter: 2006Q1

REPORT INFORMATION
  Report Type: 
  Country: None (occurrence: None)
  Receive Date: 20060109
  Receipt Date: 20051123
  Transmission Date: 20060701
  Serious: Yes (Hospitalization)
  Sender: FDA-Public Use
  Company Number: US-GLAXOSMITHKLINE-A0583432A

PATIENT
  Age: 69 Year
  Sex: Male
  Weight: 108.2 kg

DRUGS (8)
  1. REQUIP [Suspect]
     Indication: RESTLESS LEGS SYNDROME
     Dosage: .25MG PER DAY
     Route: 048
     Dates: start: 20051116, end: 20051116
  2. ACTOS [Concomitant]
     Dosage: 15MG PER DAY
     Route: 048
     Dates: start: 20020101
  3. ALTACE [Concomitant]
     Dosage: 10MG PER DAY
     Route: 048
     Dates: start: 20040101
  4. PLAVIX [Concomitant]
     Dosage: 75MG PER DAY
     Route: 048
     Dates: start: 20051101
  5. ASPIRIN [Concomitant]
     Dosage: 81MG PER DAY
     Route: 048
     Dates: start: 20020101
  6. PERCOCET [Concomitant]
     Route: 048
     Dates: start: 20040101
  7. MIRAPEX [Concomitant]
     Route: 048
     Dates: start: 20040101
  8. PROTONIX [Concomitant]
     Dosage: 40MG PER DAY
     Route: 048
     Dates: start: 20040101

REACTIONS (6)
  - ABDOMINAL PAIN [None]
  - BILE DUCT STONE [None]
  - HEPATIC ENZYME INCREASED [None]
  - LIPASE INCREASED [None]
  - NAUSEA [None]
  - PANCREATITIS [None]
